FAERS Safety Report 15391944 (Version 2)
Quarter: 2019Q2

REPORT INFORMATION
  Report Type: Spontaneous
  Country: US (occurrence: US)
  Receive Date: 20180917
  Receipt Date: 20190531
  Transmission Date: 20190711
  Serious: No
  Sender: FDA-Public Use
  Company Number: US-PFIZER INC-2018372571

PATIENT
  Age: 71 Year
  Sex: Male

DRUGS (2)
  1. LYRICA [Suspect]
     Active Substance: PREGABALIN
     Indication: PERIODIC LIMB MOVEMENT DISORDER
     Dosage: 50 MG, 1X/DAY AT NIGHT
     Route: 048
     Dates: start: 20180816, end: 20180903
  2. APIXABAN [Concomitant]
     Active Substance: APIXABAN
     Indication: CARDIAC ASSISTANCE DEVICE USER
     Dosage: 5 MG, 2X/DAY
     Dates: start: 2017

REACTIONS (6)
  - Depression [Recovered/Resolved]
  - Product use in unapproved indication [Unknown]
  - Insomnia [Recovered/Resolved]
  - Off label use [Unknown]
  - Anxiety [Recovered/Resolved]
  - Abnormal dreams [Recovered/Resolved]

NARRATIVE: CASE EVENT DATE: 20180816
